FAERS Safety Report 25647923 (Version 3)
Quarter: 2025Q3

REPORT INFORMATION
  Report Type: Report from Study
  Country: BR (occurrence: BR)
  Receive Date: 20250806
  Receipt Date: 20250915
  Transmission Date: 20251021
  Serious: Yes (Hospitalization, Other)
  Sender: ALEXION PHARMACEUTICALS
  Company Number: BR-AstraZeneca-CH-00922226A

PATIENT
  Age: 5 Year
  Sex: Male
  Weight: 36 kg

DRUGS (3)
  1. SOLIRIS [Suspect]
     Active Substance: ECULIZUMAB
     Indication: Atypical haemolytic uraemic syndrome
  2. SOLIRIS [Suspect]
     Active Substance: ECULIZUMAB
     Dates: start: 20161101, end: 20191217
  3. SOLIRIS [Suspect]
     Active Substance: ECULIZUMAB

REACTIONS (9)
  - Haemolytic anaemia [Unknown]
  - Renal impairment [Unknown]
  - Thrombocytopenia [Unknown]
  - Fistula [Unknown]
  - Atypical haemolytic uraemic syndrome [Unknown]
  - Chronic kidney disease [Unknown]
  - Polyuria [Unknown]
  - Product administration interrupted [Unknown]
  - Off label use [Not Recovered/Not Resolved]

NARRATIVE: CASE EVENT DATE: 20171101
